FAERS Safety Report 13243531 (Version 1)
Quarter: 2017Q1

REPORT INFORMATION
  Report Type: Spontaneous
  Country: US (occurrence: US)
  Receive Date: 20170216
  Receipt Date: 20170216
  Transmission Date: 20170428
  Serious: No
  Sender: FDA-Public Use
  Company Number: US-MALLINCKRODT-T201602972

PATIENT

DRUGS (2)
  1. INOMAX [Suspect]
     Active Substance: NITRIC OXIDE
     Indication: PULMONARY HYPERTENSION
     Dosage: UNK
  2. INOMAX [Suspect]
     Active Substance: NITRIC OXIDE
     Indication: POSTOPERATIVE CARE

REACTIONS (2)
  - Rebound effect [Unknown]
  - Off label use [Unknown]
